FAERS Safety Report 11791197 (Version 1)
Quarter: 2015Q4

REPORT INFORMATION
  Report Type: Spontaneous
  Country: US (occurrence: US)
  Receive Date: 20151201
  Receipt Date: 20151201
  Transmission Date: 20160305
  Serious: Yes (Hospitalization)
  Sender: FDA-Public Use
  Company Number: US-IPCA LABORATORIES LIMITED-IPC201511-000787

PATIENT
  Age: 30 Year
  Sex: Male

DRUGS (10)
  1. NITROPRUSSIDE [Concomitant]
     Active Substance: NITROPRUSSIDE
     Indication: HEART RATE INCREASED
  2. METOPROLOL TARTRATE. [Suspect]
     Active Substance: METOPROLOL TARTRATE
     Indication: BLOOD PRESSURE SYSTOLIC INCREASED
  3. METOPROLOL TARTRATE. [Suspect]
     Active Substance: METOPROLOL TARTRATE
     Route: 048
  4. LABETOLOL [Suspect]
     Active Substance: LABETALOL HYDROCHLORIDE
     Indication: BLOOD PRESSURE SYSTOLIC INCREASED
  5. DILTIAZEM [Concomitant]
     Active Substance: DILTIAZEM
     Indication: BLOOD PRESSURE SYSTOLIC INCREASED
  6. CLONIDINE. [Concomitant]
     Active Substance: CLONIDINE
     Route: 048
  7. LABETOLOL [Suspect]
     Active Substance: LABETALOL HYDROCHLORIDE
     Route: 048
  8. DILTIAZEM [Concomitant]
     Active Substance: DILTIAZEM
     Indication: HEART RATE INCREASED
  9. NITROPRUSSIDE [Concomitant]
     Active Substance: NITROPRUSSIDE
     Indication: BLOOD PRESSURE SYSTOLIC INCREASED
  10. ESMOLOL [Suspect]
     Active Substance: ESMOLOL HYDROCHLORIDE
     Indication: BLOOD PRESSURE SYSTOLIC INCREASED

REACTIONS (8)
  - Toxicity to various agents [Unknown]
  - Shock [Unknown]
  - Hypotension [Unknown]
  - Cardiomyopathy [Unknown]
  - Hypoglycaemia [Unknown]
  - Acute kidney injury [Unknown]
  - Abdominal compartment syndrome [Unknown]
  - Intestinal ischaemia [Unknown]
